FAERS Safety Report 4699807-5 (Version None)
Quarter: 2005Q2

REPORT INFORMATION
  Report Type: 
  Country: None (occurrence: None)
  Receive Date: 20050623
  Receipt Date: 20050611
  Transmission Date: 20051028
  Serious: Yes (Hospitalization, Other)
  Sender: FDA-Public Use
  Company Number: 2005087328

PATIENT
  Sex: Male
  Weight: 98.8842 kg

DRUGS (6)
  1. XANAX [Suspect]
     Indication: ANXIETY
     Dosage: 1.5 MG (1 MG,3 IN 1 D),ORAL
     Route: 048
     Dates: start: 19870101
  2. CIPROFLOXACIN [Suspect]
     Indication: ILL-DEFINED DISORDER
  3. ZITHROMAX [Suspect]
     Indication: PNEUMONIA
     Dosage: 500 MG, INTRAVENOUS
     Route: 042
     Dates: start: 20050605
  4. ZITHROMAX [Suspect]
     Indication: PNEUMONIA
     Dosage: 500 MG, INTRAVENOUS
     Route: 042
     Dates: start: 20050608
  5. . [Concomitant]
  6. PROPRANOLOL [Concomitant]

REACTIONS (8)
  - ADVERSE DRUG REACTION [None]
  - ASTHENIA [None]
  - DRUG INTERACTION [None]
  - DRY MOUTH [None]
  - FEELING ABNORMAL [None]
  - MACULAR DEGENERATION [None]
  - PNEUMONIA [None]
  - TREMOR [None]
